FAERS Safety Report 10742634 (Version 5)
Quarter: 2015Q2

REPORT INFORMATION
  Report Type: Spontaneous
  Country: US (occurrence: US)
  Receive Date: 20150127
  Receipt Date: 20150427
  Transmission Date: 20150821
  Serious: Yes (Disabling)
  Sender: FDA-Public Use
  Company Number: US-009507513-1204USA03763

PATIENT
  Sex: Male
  Weight: 79.37 kg

DRUGS (2)
  1. PROPECIA [Suspect]
     Active Substance: FINASTERIDE
     Indication: ALOPECIA
     Dosage: 1 MG, QD
     Route: 048
     Dates: start: 200207, end: 200712
  2. PROPECIA [Suspect]
     Active Substance: FINASTERIDE
     Dosage: 1 MG, QD
     Route: 048
     Dates: start: 200812, end: 200812

REACTIONS (43)
  - Libido decreased [Recovering/Resolving]
  - Dyslipidaemia [Unknown]
  - Acne [Unknown]
  - Foot deformity [Unknown]
  - Epididymal cyst [Unknown]
  - Lymph nodes scan abnormal [Unknown]
  - Lymphadenopathy [Unknown]
  - Nausea [Unknown]
  - Testicular failure [Unknown]
  - Pharyngitis streptococcal [Unknown]
  - Dyspnoea exertional [Unknown]
  - Anxiety [Recovering/Resolving]
  - Ejaculation delayed [Unknown]
  - Blood cholesterol increased [Unknown]
  - Hyperlipidaemia [Unknown]
  - Spleen disorder [Unknown]
  - Erectile dysfunction [Not Recovered/Not Resolved]
  - Teratospermia [Unknown]
  - Genital disorder male [Unknown]
  - Vein disorder [Unknown]
  - Abdominal pain lower [Unknown]
  - Drug ineffective [Unknown]
  - Ejaculation delayed [Unknown]
  - Depression [Unknown]
  - Orgasmic sensation decreased [Unknown]
  - Stress [Unknown]
  - Headache [Unknown]
  - Gallbladder disorder [Unknown]
  - Cognitive disorder [Unknown]
  - Seasonal allergy [Unknown]
  - Back pain [Recovered/Resolved]
  - Scrotal pain [Recovered/Resolved]
  - Infertility [Unknown]
  - Diarrhoea [Unknown]
  - Sexual dysfunction [Unknown]
  - Epididymitis [Unknown]
  - Dizziness [Unknown]
  - Ejaculation failure [Unknown]
  - Ejaculation disorder [Unknown]
  - High density lipoprotein decreased [Unknown]
  - Cellulitis [Unknown]
  - Vasectomy [Unknown]
  - Testicular pain [Recovering/Resolving]

NARRATIVE: CASE EVENT DATE: 200408
